FAERS Safety Report 12528218 (Version 2)
Quarter: 2016Q4

REPORT INFORMATION
  Report Type: Report from Study
  Country: JP (occurrence: JP)
  Receive Date: 20160705
  Receipt Date: 20161114
  Transmission Date: 20170207
  Serious: Yes (Death)
  Sender: FDA-Public Use
  Company Number: JP-PFIZER INC-2016320700

PATIENT

DRUGS (4)
  1. IRINOTECAN HCL [Suspect]
     Active Substance: IRINOTECAN HYDROCHLORIDE
     Indication: SMALL CELL LUNG CANCER
     Dosage: 90 MG/M2 ON DAY 8, EVERY 2 WEEKS
     Route: 042
  2. ETOPOSIDE. [Suspect]
     Active Substance: ETOPOSIDE
     Indication: SMALL CELL LUNG CANCER
     Dosage: 60 MG/M2 ON DAYS 1-3, EVERY 2 WEEKS
     Route: 042
  3. G-CSF [Concomitant]
     Active Substance: GRANULOCYTE COLONY-STIMULATING FACTOR NOS
     Dosage: UNK, DAILY
     Route: 058
  4. CISPLATIN. [Suspect]
     Active Substance: CISPLATIN
     Indication: SMALL CELL LUNG CANCER
     Dosage: 25 MG/M2 ON DAYS 1 AND 8, EVERY 2 WEEKS
     Route: 042

REACTIONS (2)
  - Febrile neutropenia [Fatal]
  - Sepsis [Fatal]
